FAERS Safety Report 6571498-8 (Version None)
Quarter: 2010Q1

REPORT INFORMATION
  Report Type: 
  Country: None (occurrence: None)
  Receive Date: 20100205
  Receipt Date: 20100127
  Transmission Date: 20100710
  Serious: Yes (Other)
  Sender: FDA-Public Use
  Company Number: US-JNJFOC-20100111832

PATIENT
  Age: 54 Year
  Sex: Female
  Weight: 58.97 kg

DRUGS (9)
  1. EXTRA STRENGTH TYLENOL [Suspect]
     Indication: BACK PAIN
     Dosage: 1000 MG 2-3 TIMES DAILY
     Route: 048
  2. EXTRA STRENGTH TYLENOL [Suspect]
     Indication: PAIN
     Dosage: 1000 MG 2-3 TIMES DAILY
     Route: 048
  3. PROTONIX [Concomitant]
     Indication: GASTROOESOPHAGEAL REFLUX DISEASE
  4. EFFEXOR XR [Concomitant]
     Indication: DEPRESSION
  5. FEMHRT [Concomitant]
     Indication: HORMONE REPLACEMENT THERAPY
  6. ZANAFLEX [Concomitant]
     Indication: MYALGIA
     Dosage: 4-8 DAILY
  7. VYTORIN [Concomitant]
     Indication: BLOOD CHOLESTEROL INCREASED
  8. DARVOCET [Concomitant]
     Indication: MYALGIA
  9. IMITREX [Concomitant]
     Indication: MIGRAINE

REACTIONS (7)
  - ABDOMINAL DISCOMFORT [None]
  - HAEMOPTYSIS [None]
  - HEADACHE [None]
  - LACRIMATION INCREASED [None]
  - PRODUCT QUALITY ISSUE [None]
  - SINUS DISORDER [None]
  - VERTIGO [None]
